FAERS Safety Report 6934908-X (Version None)
Quarter: 2010Q3

REPORT INFORMATION
  Report Type: 
  Country: None (occurrence: None)
  Receive Date: 20100821
  Receipt Date: 20100809
  Transmission Date: 20110219
  Serious: Yes (Hospitalization)
  Sender: FDA-Public Use
  Company Number: GXKR2010DE08878

PATIENT
  Age: 43 Year
  Sex: Female

DRUGS (2)
  1. VENLAFAXINE HCL [Suspect]
     Indication: DEPRESSION
     Dosage: 75 MG/DAY
     Route: 065
  2. VENLAFAXINE HCL [Suspect]
     Dosage: 300 MG/DAY
     Route: 065

REACTIONS (4)
  - ACCIDENTAL OVERDOSE [None]
  - CHEST PAIN [None]
  - DYSPNOEA [None]
  - STRESS CARDIOMYOPATHY [None]
